FAERS Safety Report 12598297 (Version 1)
Quarter: 2016Q3

REPORT INFORMATION
  Report Type: Spontaneous
  Country: US (occurrence: None)
  Receive Date: 20160726
  Receipt Date: 20160726
  Transmission Date: 20161109
  Serious: No
  Sender: FDA-Public Use
  Company Number: None

PATIENT
  Sex: Female

DRUGS (21)
  1. METOPROLOL. [Concomitant]
     Active Substance: METOPROLOL
  2. VITAMIN D [Concomitant]
     Active Substance: CHOLECALCIFEROL
  3. CINNAMON. [Concomitant]
     Active Substance: CINNAMON
  4. FISH OIL [Concomitant]
     Active Substance: FISH OIL
  5. ADVAIR HFA [Concomitant]
     Active Substance: FLUTICASONE PROPIONATE\SALMETEROL XINAFOATE
  6. TRULICITY [Concomitant]
     Active Substance: DULAGLUTIDE
  7. FUROSEMIDE. [Concomitant]
     Active Substance: FUROSEMIDE
  8. ASPIRIN. [Concomitant]
     Active Substance: ASPIRIN
  9. VESICARE [Concomitant]
     Active Substance: SOLIFENACIN SUCCINATE
  10. ALLOPURINOL. [Concomitant]
     Active Substance: ALLOPURINOL
  11. SIMVASTATIN. [Concomitant]
     Active Substance: SIMVASTATIN
  12. PROAIR HFA [Concomitant]
     Active Substance: ALBUTEROL SULFATE
  13. ZAFIRLUKAST. [Concomitant]
     Active Substance: ZAFIRLUKAST
  14. VALSARTAN. [Concomitant]
     Active Substance: VALSARTAN
  15. VITAMIN C [Concomitant]
     Active Substance: ASCORBIC ACID
  16. METFORMIN [Concomitant]
     Active Substance: METFORMIN HYDROCHLORIDE
  17. POTASSIUM [Concomitant]
     Active Substance: POTASSIUM
  18. MAGNESIUM [Concomitant]
     Active Substance: MAGNESIUM
  19. JANUVIA [Suspect]
     Active Substance: SITAGLIPTIN PHOSPHATE
     Indication: DIABETES MELLITUS
     Route: 048
     Dates: start: 20160201, end: 20160409
  20. SPIRONOLACTONE. [Concomitant]
     Active Substance: SPIRONOLACTONE
  21. LORATADINE. [Concomitant]
     Active Substance: LORATADINE

REACTIONS (1)
  - Epistaxis [None]
